FAERS Safety Report 9258891 (Version 1)
Quarter: 2013Q2

REPORT INFORMATION
  Report Type: Spontaneous
  Country: US (occurrence: US)
  Receive Date: 20130426
  Receipt Date: 20130426
  Transmission Date: 20140414
  Serious: Yes (Hospitalization)
  Sender: FDA-Public Use
  Company Number: US-GLAXOSMITHKLINE-A1021476A

PATIENT
  Age: 63 Year
  Sex: Male

DRUGS (6)
  1. VOTRIENT [Suspect]
     Indication: RENAL CANCER STAGE IV
     Dosage: 600MG PER DAY
     Route: 048
     Dates: start: 20130329, end: 20130405
  2. METOPROLOL [Concomitant]
  3. BENZONATATE [Concomitant]
  4. LORAZEPAM [Concomitant]
  5. PACERONE [Concomitant]
  6. HYDROCODONE + ACETAMINOPHEN [Concomitant]

REACTIONS (2)
  - Haemorrhage [Recovering/Resolving]
  - Oral mucosal blistering [Recovering/Resolving]
